FAERS Safety Report 9530155 (Version 1)
Quarter: 2013Q3

REPORT INFORMATION
  Report Type: Other
  Country: ES (occurrence: ES)
  Receive Date: 20130917
  Receipt Date: 20130917
  Transmission Date: 20140515
  Serious: Yes (Other)
  Sender: FDA-Public Use
  Company Number: ES-BRISTOL-MYERS SQUIBB COMPANY-19240241

PATIENT
  Age: 66 Year
  Sex: Female

DRUGS (5)
  1. LEVODOPA + CARBIDOPA [Suspect]
     Indication: PARKINSON^S DISEASE
     Dosage: TABS AT NIGHT
  2. AMANTADINE HCL [Suspect]
     Indication: PARKINSON^S DISEASE
  3. LEVODOPA + CARBIDOPA + ENTACAPONE [Suspect]
     Indication: PARKINSON^S DISEASE
     Dosage: 150 AND 200 UNITS NOS?2 TO 4 TABS/ DAY
  4. RASAGILINE MESILATE [Suspect]
  5. DULOXETINE HCL [Suspect]
     Indication: DEPRESSION

REACTIONS (1)
  - Serotonin syndrome [Recovering/Resolving]
